FAERS Safety Report 4791883-4 (Version None)
Quarter: 2005Q4

REPORT INFORMATION
  Report Type: 
  Country: None (occurrence: None)
  Receive Date: 20051005
  Receipt Date: 20050928
  Transmission Date: 20060501
  Serious: Yes (Death, Hospitalization)
  Sender: FDA-Public Use
  Company Number: FLZ20050003

PATIENT
  Age: 76 Year
  Sex: Male

DRUGS (10)
  1. FLUCONAZOLE       150 MG       UNKNOWN [Suspect]
     Indication: GRAFT INFECTION
     Dosage: 150 MG   DAILY  PO
     Route: 048
     Dates: end: 20040101
  2. ATORVASTATIN CALCIUM [Suspect]
     Indication: LOW DENSITY LIPOPROTEIN
     Dosage: 40 MG  DAILY  PO
     Route: 048
  3. PRAVASTATIN [Concomitant]
  4. DOXYCYCLINE [Concomitant]
  5. FUSIDIC ACID [Concomitant]
  6. PREDNISOLONE [Concomitant]
  7. BISOPROLOL [Concomitant]
  8. DIGOXIN [Concomitant]
  9. ESOMEPRAZOLE [Concomitant]
  10. WARFARIN [Concomitant]

REACTIONS (18)
  - ANURIA [None]
  - CARDIOMEGALY [None]
  - DRUG EFFECT DECREASED [None]
  - DRUG INTERACTION [None]
  - DYSPNOEA [None]
  - GENERAL PHYSICAL HEALTH DETERIORATION [None]
  - GRAFT INFECTION [None]
  - HAEMODIALYSIS [None]
  - HAEMOGLOBIN INCREASED [None]
  - HEPARIN-INDUCED THROMBOCYTOPENIA [None]
  - HYPOTENSION [None]
  - MULTI-ORGAN FAILURE [None]
  - MYOPATHY [None]
  - PNEUMONIA [None]
  - PO2 DECREASED [None]
  - PULMONARY CONGESTION [None]
  - RENAL FAILURE [None]
  - RHABDOMYOLYSIS [None]
